FAERS Safety Report 11445923 (Version 1)
Quarter: 2015Q3

REPORT INFORMATION
  Report Type: Spontaneous
  Country: US (occurrence: US)
  Receive Date: 20150831
  Receipt Date: 20150831
  Transmission Date: 20151125
  Serious: No
  Sender: FDA-Public Use
  Company Number: US-ELI_LILLY_AND_COMPANY-US200809000232

PATIENT
  Sex: Female

DRUGS (6)
  1. TOPAMAX [Concomitant]
     Active Substance: TOPIRAMATE
     Indication: DEPRESSION
     Dosage: 200 MG, DAILY (1/D)
     Route: 064
     Dates: start: 200709, end: 20080704
  2. PRENATAL VITAMINS                  /01549301/ [Concomitant]
     Active Substance: VITAMINS
     Dosage: 1 D/F, AS NEEDED
     Route: 064
     Dates: start: 200712, end: 20080704
  3. CYMBALTA [Suspect]
     Active Substance: DULOXETINE HYDROCHLORIDE
     Indication: DEPRESSION
     Dosage: 20 MG, DAILY (1/D)
     Route: 064
     Dates: start: 200709, end: 20080123
  4. STROVITE [Concomitant]
     Dosage: UNK, UNK
     Route: 064
     Dates: start: 200709, end: 200712
  5. ZOLOFT [Concomitant]
     Active Substance: SERTRALINE HYDROCHLORIDE
     Dosage: UNK, UNK
     Route: 064
     Dates: start: 200801, end: 20080704
  6. CLARITIN [Concomitant]
     Active Substance: LORATADINE
     Indication: MULTIPLE ALLERGIES
     Dosage: 1 D/F, AS NEEDED
     Route: 064
     Dates: start: 200709, end: 20080704

REACTIONS (2)
  - Foetal exposure during pregnancy [Recovered/Resolved]
  - Meconium abnormal [Recovered/Resolved]

NARRATIVE: CASE EVENT DATE: 200709
